FAERS Safety Report 17225029 (Version 1)
Quarter: 2019Q4

REPORT INFORMATION
  Report Type: Spontaneous
  Country: US (occurrence: US)
  Receive Date: 20191209
  Receipt Date: 20191209
  Transmission Date: 20200122
  Serious: Yes (Hospitalization)
  Sender: FDA-Public Use
  Company Number: None

PATIENT
  Age: 35 Year
  Sex: Female

DRUGS (5)
  1. NASACORT [Concomitant]
     Active Substance: TRIAMCINOLONE ACETONIDE
  2. ZOFRAN [Concomitant]
     Active Substance: ONDANSETRON HYDROCHLORIDE
  3. SYNTHROID [Concomitant]
     Active Substance: LEVOTHYROXINE SODIUM
  4. ZOLOOFT [Concomitant]
  5. AFINITOR [Suspect]
     Active Substance: EVEROLIMUS
     Indication: CARCINOID TUMOUR
     Dosage: UREADABLE DATE
     Route: 048
     Dates: start: 2019

REACTIONS (3)
  - Stomatitis [None]
  - Pneumonia [None]
  - Therapy cessation [None]
